FAERS Safety Report 9118358 (Version 1)
Quarter: 2013Q1

REPORT INFORMATION
  Report Type: Spontaneous
  Country: US (occurrence: None)
  Receive Date: 20130221
  Receipt Date: 20130221
  Transmission Date: 20140127
  Serious: Yes (Hospitalization)
  Sender: FDA-Public Use
  Company Number: None

PATIENT
  Sex: Male
  Weight: 73.4 kg

DRUGS (16)
  1. CYCLOPHOSPHAMIDE [Suspect]
     Dosage: 750 MG/M2/DOSE X 2.09 M2 = 1,600 MG/DOSE
  2. DOXORUBICIN HYDROCHLORIDE [Suspect]
     Dosage: 50 MG/M2/DOSE X 2.09 M2 = 100 MG/DOSE
  3. RITUXIMAB [Suspect]
     Dosage: 375 MG/M2/DOSE X 2.09 M2 = 780 MG/DOSE
  4. VINCRISTINE SULFATE [Suspect]
     Dosage: 1 MG/M2/DOSE X 2 M2 =2 MG/DOSE. LAST DOSE GIVEN
  5. ASA [Concomitant]
  6. ALBUTEROL [Concomitant]
  7. CEFTIN [Concomitant]
  8. FIHERTAB [Concomitant]
  9. CIVAFENESIN [Concomitant]
  10. METRUNIDAZULE [Concomitant]
  11. NEULASTA [Concomitant]
  12. SODIUM CHLORIDE [Concomitant]
  13. VANCUCIN [Concomitant]
  14. FLUDRUCURTISUNE [Concomitant]
  15. MIDUDRINE [Concomitant]
  16. MIRTAZAPINE [Concomitant]

REACTIONS (7)
  - Dehydration [None]
  - Pneumonia [None]
  - Hypotension [None]
  - Hypokalaemia [None]
  - Aspiration [None]
  - Confusional state [None]
  - Agitation [None]
